FAERS Safety Report 25270387 (Version 1)
Quarter: 2025Q2

REPORT INFORMATION
  Report Type: Report from Study
  Country: JP (occurrence: JP)
  Receive Date: 20250505
  Receipt Date: 20250505
  Transmission Date: 20250717
  Serious: Yes (Other)
  Sender: MERCK SHARP & DOHME LLC
  Company Number: JP-MSD-2412JPN004033J

PATIENT
  Age: 4 Decade
  Sex: Male

DRUGS (2)
  1. PIFELTRO [Suspect]
     Active Substance: DORAVIRINE
     Indication: HIV infection
     Dosage: DOSE DESCRIPTION : 1 DOSAGE FORM/DAY
     Route: 048
     Dates: start: 20231124
  2. DESCOVY [Concomitant]
     Active Substance: EMTRICITABINE\TENOFOVIR ALAFENAMIDE FUMARATE
     Indication: HIV infection
     Route: 048
     Dates: start: 20231124

REACTIONS (5)
  - Gallbladder enlargement [Unknown]
  - Hyperplastic cholecystopathy [Not Recovered/Not Resolved]
  - Liver disorder [Not Recovered/Not Resolved]
  - Hepatic steatosis [Not Recovered/Not Resolved]
  - Gallbladder polyp [Not Recovered/Not Resolved]

NARRATIVE: CASE EVENT DATE: 20231124
